FAERS Safety Report 9772326 (Version 1)
Quarter: 2013Q4

REPORT INFORMATION
  Report Type: Spontaneous
  Country: US (occurrence: None)
  Receive Date: 20131218
  Receipt Date: 20131218
  Transmission Date: 20140711
  Serious: No
  Sender: FDA-Public Use
  Company Number: None

PATIENT
  Age: 58 Year
  Sex: Female

DRUGS (2)
  1. SIMVASTATIN [Suspect]
  2. HCTZ [Suspect]

REACTIONS (2)
  - Eye disorder [None]
  - Unevaluable event [None]
